FAERS Safety Report 4440676-6 (Version None)
Quarter: 2004Q3

REPORT INFORMATION
  Report Type: 
  Country: None (occurrence: None)
  Receive Date: 20040903
  Receipt Date: 20040826
  Transmission Date: 20050211
  Serious: Yes (Life-Threatening, Hospitalization)
  Sender: FDA-Public Use
  Company Number: EMADSS2003001688

PATIENT
  Sex: Female
  Weight: 2.04 kg

DRUGS (1)
  1. PROPULSID [Suspect]
     Route: 065
     Dates: start: 20030206

REACTIONS (25)
  - BASE EXCESS NEGATIVE [None]
  - BLOOD BICARBONATE DECREASED [None]
  - CHOKING [None]
  - CONDITION AGGRAVATED [None]
  - CYANOSIS [None]
  - DUODENITIS [None]
  - ELECTROCARDIOGRAM QT CORRECTED INTERVAL PROLONGED [None]
  - ELECTROCARDIOGRAM ST SEGMENT ELEVATION [None]
  - ELECTROCARDIOGRAM T WAVE ABNORMAL [None]
  - EOSINOPHIL PERCENTAGE INCREASED [None]
  - FOAMING AT MOUTH [None]
  - GASTROOESOPHAGEAL REFLUX DISEASE [None]
  - HAEMATOCRIT DECREASED [None]
  - HAEMOGLOBIN DECREASED [None]
  - HEART RATE INCREASED [None]
  - LYMPHOCYTE PERCENTAGE INCREASED [None]
  - NEUTROPHIL PERCENTAGE DECREASED [None]
  - PALLOR [None]
  - PCO2 DECREASED [None]
  - PLATELET COUNT INCREASED [None]
  - PO2 INCREASED [None]
  - RED BLOOD CELL COUNT DECREASED [None]
  - REFLUX OESOPHAGITIS [None]
  - SLEEP APNOEA SYNDROME [None]
  - SLEEP DISORDER [None]
